FAERS Safety Report 7942205-9 (Version None)
Quarter: 2011Q4

REPORT INFORMATION
  Report Type: 
  Country: None (occurrence: None)
  Receive Date: 20111114
  Receipt Date: 20101215
  Transmission Date: 20120403
  Serious: Yes (Death)
  Sender: FDA-Public Use
  Company Number: 2010S1001786

PATIENT
  Age: 54 Year
  Weight: 70 kg

DRUGS (5)
  1. VANCOMYCIN [Concomitant]
  2. NAFCILLIN [Concomitant]
  3. PIPERACILLIN AND TAZOBACTAM [Concomitant]
  4. CUBICIN [Suspect]
     Indication: STAPHYLOCOCCAL BACTERAEMIA
     Dosage: 9 MG/KG;QD;IV
     Route: 042
  5. LEVOFLOXACIN [Concomitant]

REACTIONS (2)
  - TERMINAL STATE [None]
  - NEUROLOGICAL DECOMPENSATION [None]
